FAERS Safety Report 8901833 (Version 1)
Quarter: 2012Q4

REPORT INFORMATION
  Report Type: Spontaneous
  Country: FR (occurrence: None)
  Receive Date: 20121106
  Receipt Date: 20121106
  Transmission Date: 20130627
  Serious: Yes (Other)
  Sender: FDA-Public Use
  Company Number: FR-SEPTODONT-201200814

PATIENT
  Age: 65 Year
  Sex: Female
  Weight: 65 kg

DRUGS (1)
  1. SEPTOCAINE WITH EPINEPHRINE [Suspect]
     Indication: ANESTHESIA LOCAL
     Dosage: 2 CARTRIDGES DENTAL
     Route: 004
     Dates: start: 20120306, end: 20120306

REACTIONS (2)
  - Osteonecrosis of jaw [None]
  - Gingivitis ulcerative [None]
